FAERS Safety Report 8252416-3 (Version None)
Quarter: 2012Q2

REPORT INFORMATION
  Report Type: 
  Country: None (occurrence: None)
  Receive Date: 20120402
  Receipt Date: 20120328
  Transmission Date: 20120825
  Serious: Yes (Other)
  Sender: FDA-Public Use
  Company Number: US-GILEAD-2012-0052934

PATIENT
  Age: 45 Year
  Sex: Female

DRUGS (2)
  1. LETAIRIS [Suspect]
     Indication: PRODUCT USED FOR UNKNOWN INDICATION
     Dosage: 5 MG, UNK
     Route: 048
  2. REMODULIN [Concomitant]

REACTIONS (3)
  - PAIN [None]
  - LOSS OF CONSCIOUSNESS [None]
  - DISCOMFORT [None]
